FAERS Safety Report 7370213-8 (Version None)
Quarter: 2011Q1

REPORT INFORMATION
  Report Type: 
  Country: None (occurrence: None)
  Receive Date: 20110323
  Receipt Date: 20100831
  Transmission Date: 20110831
  Serious: No
  Sender: FDA-Public Use
  Company Number: US-ASTRAZENECA-2010SE41138

PATIENT

DRUGS (7)
  1. LEVOTHYROXINE SODIUM [Concomitant]
  2. LOESTRIN FE 1/20 [Concomitant]
     Dosage: 1/20 ONCE DAILY
  3. VERAPAMIL HCL [Concomitant]
  4. LISINOPRIL [Suspect]
     Route: 048
  5. NEXIUM [Concomitant]
  6. CLONIDINE HCL [Concomitant]
  7. METOPROLOL [Suspect]
     Route: 048

REACTIONS (2)
  - ULCER [None]
  - DRUG HYPERSENSITIVITY [None]
